FAERS Safety Report 9027723 (Version 1)
Quarter: 2013Q1

REPORT INFORMATION
  Report Type: Spontaneous
  Country: JP (occurrence: JP)
  Receive Date: 20130124
  Receipt Date: 20130124
  Transmission Date: 20140127
  Serious: Yes (Hospitalization, Other)
  Sender: FDA-Public Use
  Company Number: JP-SP-2013-00653

PATIENT
  Age: 63 Year
  Sex: Male

DRUGS (2)
  1. IMMUCYST [Suspect]
     Indication: BLADDER CANCER RECURRENT
     Dosage: NOT REPORTED
     Route: 065
  2. MITOMYCIN C [Concomitant]
     Indication: BLADDER CANCER
     Route: 065

REACTIONS (4)
  - Reiter^s syndrome [Recovering/Resolving]
  - Pyrexia [Recovered/Resolved]
  - Ocular hyperaemia [Recovering/Resolving]
  - Pain in extremity [Recovering/Resolving]
